FAERS Safety Report 15186679 (Version 1)
Quarter: 2018Q3

REPORT INFORMATION
  Report Type: Report from Study
  Country: US (occurrence: US)
  Receive Date: 20180723
  Receipt Date: 20180723
  Transmission Date: 20181010
  Serious: No
  Sender: FDA-Public Use
  Company Number: US-EXELIXIS-CABO-18013034

PATIENT
  Age: 58 Year
  Sex: Male

DRUGS (13)
  1. IBUPROFEN. [Concomitant]
     Active Substance: IBUPROFEN
  2. TURMERIC [Concomitant]
     Active Substance: HERBALS\TURMERIC
  3. LOPERAMIDE [Concomitant]
     Active Substance: LOPERAMIDE
  4. LEVOTHYROXINE. [Concomitant]
     Active Substance: LEVOTHYROXINE
  5. CABOMETYX [Suspect]
     Active Substance: CABOZANTINIB S-MALATE
     Indication: RENAL CANCER
     Dosage: 40 MG, QD
     Route: 048
     Dates: start: 20171221
  6. BUPROPION. [Concomitant]
     Active Substance: BUPROPION
  7. FISH OIL [Concomitant]
     Active Substance: FISH OIL
  8. A?HYDROCORT [Concomitant]
     Active Substance: HYDROCORTISONE SODIUM SUCCINATE
  9. PROBIOTIC [Concomitant]
     Active Substance: PROBIOTICS NOS
  10. FLAXSEED [Concomitant]
     Active Substance: FLAX SEED
  11. GINGER. [Concomitant]
     Active Substance: GINGER
  12. LYSINE [Concomitant]
     Active Substance: LYSINE
  13. MILK THISTLE PLUS [Concomitant]
     Active Substance: DIETARY SUPPLEMENT\HERBALS\MILK THISTLE

REACTIONS (7)
  - Hyperkeratosis [Unknown]
  - Temperature intolerance [Unknown]
  - Nausea [Recovered/Resolved]
  - Vomiting [Recovered/Resolved]
  - Dry skin [Unknown]
  - Intentional product misuse [Unknown]
  - Diarrhoea [Not Recovered/Not Resolved]

NARRATIVE: CASE EVENT DATE: 20180410
